FAERS Safety Report 7300859-4 (Version None)
Quarter: 2011Q1

REPORT INFORMATION
  Report Type: 
  Country: None (occurrence: None)
  Receive Date: 20110218
  Receipt Date: 20110209
  Transmission Date: 20110831
  Serious: Yes (Hospitalization, Other)
  Sender: FDA-Public Use
  Company Number: PHHY2011CN11718

PATIENT
  Age: 39 Year
  Sex: Male

DRUGS (5)
  1. SEBIVO [Suspect]
     Indication: HEPATITIS B SURFACE ANTIGEN POSITIVE
  2. ENTECAVIR [Concomitant]
     Dosage: 2 CAPSULES A DAY
     Route: 048
  3. SEBIVO [Suspect]
     Indication: HEPATITIS B CORE ANTIGEN POSITIVE
  4. SEBIVO [Suspect]
     Indication: HEPATIC CIRRHOSIS
     Dosage: 600 MG, QD
     Route: 048
     Dates: start: 20090901, end: 20110120
  5. SEBIVO [Suspect]
     Indication: HEPATITIS B E ANTIGEN POSITIVE

REACTIONS (13)
  - JAUNDICE [None]
  - BLOOD BILIRUBIN INCREASED [None]
  - DISEASE PROGRESSION [None]
  - ABDOMINAL INFECTION [None]
  - VIRAL LOAD INCREASED [None]
  - HEPATIC CIRRHOSIS [None]
  - ASCITES [None]
  - DRUG RESISTANCE [None]
  - BLOOD CREATINE PHOSPHOKINASE INCREASED [None]
  - MYOGLOBIN BLOOD INCREASED [None]
  - FATIGUE [None]
  - HEPATITIS [None]
  - COAGULATION FACTOR XI LEVEL DECREASED [None]
